FAERS Safety Report 18279913 (Version 9)
Quarter: 2020Q4

REPORT INFORMATION
  Report Type: Report from Study
  Country: CO (occurrence: CO)
  Receive Date: 20200917
  Receipt Date: 20201216
  Transmission Date: 20210113
  Serious: Yes (Hospitalization, Other)
  Sender: FDA-Public Use
  Company Number: CO-TAKEDA-2020TUS038356

PATIENT
  Age: 39 Year
  Sex: Female
  Weight: 61 kg

DRUGS (3)
  1. MESALAMINE. [Concomitant]
     Active Substance: MESALAMINE
     Dosage: UNK
  2. VEDOLIZUMAB [Suspect]
     Active Substance: VEDOLIZUMAB
     Indication: COLITIS ULCERATIVE
     Dosage: 300 MILLIGRAM, Q6WEEKS
     Route: 042
     Dates: start: 20200907, end: 20201019
  3. HUMIRA [Suspect]
     Active Substance: ADALIMUMAB
     Indication: COLITIS ULCERATIVE
     Dosage: UNK
     Route: 065

REACTIONS (27)
  - Haemoglobin decreased [Recovering/Resolving]
  - Illness [Not Recovered/Not Resolved]
  - Haematochezia [Not Recovered/Not Resolved]
  - Vomiting [Recovering/Resolving]
  - Tremor [Recovering/Resolving]
  - Infusion site pain [Recovered/Resolved]
  - Pruritus [Recovered/Resolved]
  - Gastrointestinal pain [Not Recovered/Not Resolved]
  - Mucous stools [Not Recovered/Not Resolved]
  - Off label use [Unknown]
  - Oesophagitis [Unknown]
  - Abdominal pain [Recovering/Resolving]
  - Gastrointestinal infection [Recovering/Resolving]
  - Pain [Recovering/Resolving]
  - Feeling abnormal [Not Recovered/Not Resolved]
  - Pyrexia [Recovering/Resolving]
  - Colitis ulcerative [Unknown]
  - Haemorrhage [Recovering/Resolving]
  - Arthritis bacterial [Unknown]
  - Hospitalisation [Not Recovered/Not Resolved]
  - Chills [Recovering/Resolving]
  - Nausea [Recovering/Resolving]
  - Gastritis [Unknown]
  - Burning sensation [Unknown]
  - Headache [Recovering/Resolving]
  - Inflammation [Unknown]
  - Colitis [Recovering/Resolving]

NARRATIVE: CASE EVENT DATE: 20200907
